FAERS Safety Report 4855370-7 (Version None)
Quarter: 2005Q4

REPORT INFORMATION
  Report Type: 
  Country: None (occurrence: None)
  Receive Date: 20051125
  Receipt Date: 20050215
  Transmission Date: 20060501
  Serious: Yes (Hospitalization)
  Sender: FDA-Public Use
  Company Number: ATO-05-0052

PATIENT
  Age: 82 Year
  Sex: Female
  Weight: 110.2241 kg

DRUGS (1)
  1. TRISENOX [Suspect]
     Indication: MYELODYSPLASTIC SYNDROME
     Dosage: 0.30 MG/KG (0.3 MG/KG,1 DOSE ONLY),IVI
     Dates: start: 20050131, end: 20050131

REACTIONS (1)
  - CELLULITIS [None]
